FAERS Safety Report 25084754 (Version 1)
Quarter: 2025Q1

REPORT INFORMATION
  Report Type: Spontaneous
  Country: US (occurrence: US)
  Receive Date: 20250317
  Receipt Date: 20250317
  Transmission Date: 20250409
  Serious: No
  Sender: EISAI
  Company Number: US-Eisai-EC-2025-184711

PATIENT
  Age: 80 Year
  Sex: Male

DRUGS (2)
  1. LECANEMAB [Suspect]
     Active Substance: LECANEMAB
     Indication: Product used for unknown indication
     Dates: start: 202502, end: 202502
  2. LECANEMAB [Suspect]
     Active Substance: LECANEMAB
     Dates: start: 20250220, end: 20250220

REACTIONS (5)
  - Blood pressure increased [Unknown]
  - Back pain [Recovering/Resolving]
  - Dizziness [Unknown]
  - Hyperhidrosis [Unknown]
  - Cognitive disorder [Unknown]

NARRATIVE: CASE EVENT DATE: 20250220
